FAERS Safety Report 6674852-9 (Version None)
Quarter: 2010Q1

REPORT INFORMATION
  Report Type: 
  Country: None (occurrence: None)
  Receive Date: 20100331
  Receipt Date: 20100122
  Transmission Date: 20100710
  Serious: Yes (Hospitalization, Other)
  Sender: FDA-Public Use
  Company Number: 2010010355

PATIENT
  Sex: Female

DRUGS (4)
  1. SUTENT [Suspect]
     Indication: RENAL CELL CARCINOMA
     Dosage: 50 MG, ORAL
     Route: 048
  2. NORVASC [Concomitant]
  3. DIOVANE (VALSARTAN) [Concomitant]
  4. LAMICTAL [Concomitant]

REACTIONS (4)
  - BLOOD PRESSURE INCREASED [None]
  - DIARRHOEA [None]
  - FATIGUE [None]
  - MUCOSAL INFLAMMATION [None]
